FAERS Safety Report 6899988-9 (Version None)
Quarter: 2010Q3

REPORT INFORMATION
  Report Type: 
  Country: None (occurrence: None)
  Receive Date: 20100708
  Receipt Date: 20090901
  Transmission Date: 20110219
  Serious: Yes (Other)
  Sender: FDA-Public Use
  Company Number: 2009265939

PATIENT
  Age: 54 Year
  Sex: Female
  Weight: 85.3 kg

DRUGS (6)
  1. CHANTIX [Suspect]
     Indication: SMOKING CESSATION THERAPY
     Dosage: 1 MG, 2X/DAY
     Dates: start: 20090701, end: 20090101
  2. MULTI-VITAMINS [Concomitant]
  3. AMBIEN [Concomitant]
  4. AVALIDE [Concomitant]
  5. DARVOCET [Concomitant]
  6. PLAVIX [Concomitant]

REACTIONS (2)
  - IRRITABILITY [None]
  - SUICIDAL IDEATION [None]
